FAERS Safety Report 13591037 (Version 4)
Quarter: 2017Q3

REPORT INFORMATION
  Report Type: Report from Study
  Country: US (occurrence: US)
  Receive Date: 20170529
  Receipt Date: 20170809
  Transmission Date: 20171127
  Serious: Yes (Hospitalization)
  Sender: FDA-Public Use
  Company Number: US-MALLINCKRODT-T201702194

PATIENT
  Sex: Female

DRUGS (2)
  1. REPOSITORY CORTICOTROPIN INJECTION [Suspect]
     Active Substance: CORTICOTROPIN
     Indication: NEPHROTIC SYNDROME
     Dosage: 80 UNITS / 1 ML 1 TIME WEEKLY SUN
     Route: 058
  2. REPOSITORY CORTICOTROPIN INJECTION [Suspect]
     Active Substance: CORTICOTROPIN
     Indication: PROTEINURIA
     Dosage: 80 UNITS / 1 ML, 2 TIMES PER WEEK, WEDNESDAY/SUNDAY
     Route: 058
     Dates: start: 20170412

REACTIONS (11)
  - Haemoglobin decreased [Recovering/Resolving]
  - Infection [Recovering/Resolving]
  - Drug ineffective [Not Recovered/Not Resolved]
  - Feeling abnormal [Recovering/Resolving]
  - Oesophagitis [Recovering/Resolving]
  - Ulcer [Recovered/Resolved]
  - Peripheral swelling [Recovering/Resolving]
  - Muscle spasms [Recovering/Resolving]
  - Drug dose omission [Unknown]
  - Gastrointestinal haemorrhage [Recovered/Resolved]
  - Blood potassium decreased [Unknown]
